FAERS Safety Report 14305733 (Version 1)
Quarter: 2017Q4

REPORT INFORMATION
  Report Type: Spontaneous
  Country: FR (occurrence: FR)
  Receive Date: 20171219
  Receipt Date: 20171219
  Transmission Date: 20180321
  Serious: Yes (Hospitalization)
  Sender: FDA-Public Use
  Company Number: FR-TEVA-2017-FR-832575

PATIENT
  Age: 69 Year
  Sex: Male
  Weight: 95 kg

DRUGS (12)
  1. LASILIX SPECIAL 500 MG, COMPRIM? S?CABLE [Concomitant]
  2. BISOPROLOL (FUMARATE ACIDE DE) [Concomitant]
     Active Substance: BISOPROLOL FUMARATE
  3. PAROXETINE. [Concomitant]
     Active Substance: PAROXETINE
  4. RAMIPRIL. [Concomitant]
     Active Substance: RAMIPRIL
  5. ZOVIRAX [Suspect]
     Active Substance: ACYCLOVIR
     Indication: ENCEPHALITIS
     Dates: start: 20170105, end: 20170107
  6. IOMERON [Suspect]
     Active Substance: IOMEPROL
     Indication: COMPUTERISED TOMOGRAM HEAD
     Route: 042
     Dates: start: 20170104, end: 20170104
  7. LEXOMIL ROCHE [Concomitant]
     Active Substance: BROMAZEPAM
  8. POTASSIUM [Concomitant]
     Active Substance: POTASSIUM
  9. ALDACTONE 25 MG, COMPRIM? PELLICUL? S?CABLE [Concomitant]
  10. SERESTA [Concomitant]
     Active Substance: OXAZEPAM
  11. AMOXICILLIN. [Suspect]
     Active Substance: AMOXICILLIN
     Indication: ENCEPHALITIS
     Route: 042
     Dates: start: 20170105, end: 20170107
  12. LOVENOX [Concomitant]
     Active Substance: ENOXAPARIN SODIUM

REACTIONS (2)
  - Metabolic acidosis [Recovered/Resolved]
  - Acute kidney injury [Recovered/Resolved]

NARRATIVE: CASE EVENT DATE: 20170107
